FAERS Safety Report 10501447 (Version 1)
Quarter: 2014Q4

REPORT INFORMATION
  Report Type: Spontaneous
  Country: US (occurrence: None)
  Receive Date: 20141006
  Receipt Date: 20141006
  Transmission Date: 20150528
  Serious: Yes (Other)
  Sender: FDA-Public Use
  Company Number: None

PATIENT
  Age: 79 Year
  Sex: Female
  Weight: 68.04 kg

DRUGS (2)
  1. OXYBUTYNIN [Suspect]
     Active Substance: OXYBUTYNIN
     Indication: URINARY INCONTINENCE
     Dosage: 1 TABLET TWICE DAILY  TWICE DAILY TAKEN BY MOUTH
     Route: 048
     Dates: start: 20140321, end: 20140830
  2. OXYBUTYNIN [Suspect]
     Active Substance: OXYBUTYNIN
     Indication: FAECAL INCONTINENCE
     Dosage: 1 TABLET TWICE DAILY  TWICE DAILY TAKEN BY MOUTH
     Route: 048
     Dates: start: 20140321, end: 20140830

REACTIONS (8)
  - Pain in extremity [None]
  - Bladder pain [None]
  - Musculoskeletal pain [None]
  - Enuresis [None]
  - Back pain [None]
  - Dysuria [None]
  - Myalgia [None]
  - Bladder spasm [None]

NARRATIVE: CASE EVENT DATE: 20140901
